FAERS Safety Report 24698155 (Version 2)
Quarter: 2025Q1

REPORT INFORMATION
  Report Type: Report from Study
  Country: FR (occurrence: FR)
  Receive Date: 20241204
  Receipt Date: 20250220
  Transmission Date: 20250408
  Serious: Yes (Other)
  Sender: ALNYLAM PHARMACEUTICALS
  Company Number: FR-ALNYLAM PHARMACEUTICALS, INC.-ALN-2024-006733

PATIENT

DRUGS (2)
  1. ONPATTRO [Suspect]
     Active Substance: PATISIRAN SODIUM
     Indication: Product used for unknown indication
     Route: 065
  2. ONPATTRO [Suspect]
     Active Substance: PATISIRAN SODIUM
     Route: 065
     Dates: start: 20191205, end: 20191205

REACTIONS (8)
  - Cerebrovascular accident [Recovering/Resolving]
  - Fall [Unknown]
  - General physical health deterioration [Unknown]
  - Malaise [Unknown]
  - Decreased appetite [Unknown]
  - Boredom [Unknown]
  - Night blindness [Unknown]
  - Vitamin A decreased [Unknown]

NARRATIVE: CASE EVENT DATE: 20191224
